FAERS Safety Report 10592444 (Version 3)
Quarter: 2014Q4

REPORT INFORMATION
  Report Type: Spontaneous
  Country: FR (occurrence: FR)
  Receive Date: 20141119
  Receipt Date: 20141209
  Transmission Date: 20150529
  Serious: Yes (Other)
  Sender: FDA-Public Use
  Company Number: FR-ABBVIE-14K-056-1309273-00

PATIENT
  Sex: Female
  Weight: 88 kg

DRUGS (5)
  1. HUMIRA [Suspect]
     Active Substance: ADALIMUMAB
     Dosage: 1 INJECTION
     Route: 065
     Dates: start: 201410
  2. NOMEGESTROL [Concomitant]
     Active Substance: NOMEGESTROL
     Indication: UTERINE LEIOMYOMA
  3. NOMEGESTROL [Concomitant]
     Active Substance: NOMEGESTROL
     Indication: VAGINAL HAEMORRHAGE
     Dosage: 1/2 A DAY
     Route: 048
     Dates: start: 20141001, end: 20141113
  4. HUMIRA [Suspect]
     Active Substance: ADALIMUMAB
     Indication: COLITIS ULCERATIVE
     Dosage: LOADING DOSE
     Route: 065
     Dates: start: 20140930, end: 20140930
  5. DECAPEPTYL [Concomitant]
     Active Substance: TRIPTORELIN ACETATE
     Indication: UTERINE LEIOMYOMA
     Dosage: 1 INJECTION
     Route: 030

REACTIONS (4)
  - Vaginal haemorrhage [Unknown]
  - Uterine haemorrhage [Unknown]
  - C-reactive protein increased [Unknown]
  - Red blood cell sedimentation rate increased [Unknown]

NARRATIVE: CASE EVENT DATE: 2014
